FAERS Safety Report 4735815-3 (Version None)
Quarter: 2005Q3

REPORT INFORMATION
  Report Type: 
  Country: None (occurrence: None)
  Receive Date: 20050805
  Receipt Date: 20050428
  Transmission Date: 20060218
  Serious: Yes (Hospitalization, Other)
  Sender: FDA-Public Use
  Company Number: 2005AP02711

PATIENT
  Age: 831 Month
  Sex: Male

DRUGS (1)
  1. ZOLADEX [Suspect]
     Indication: PROSTATE CANCER
     Route: 058
     Dates: start: 20040901, end: 20050301

REACTIONS (4)
  - JAUNDICE [None]
  - LARYNGEAL CANCER [None]
  - LARYNGITIS [None]
  - LIVER DISORDER [None]
